FAERS Safety Report 4545259-5 (Version None)
Quarter: 2005Q1

REPORT INFORMATION
  Report Type: 
  Country: None (occurrence: None)
  Receive Date: 20050105
  Receipt Date: 20041230
  Transmission Date: 20050727
  Serious: Yes (Other)
  Sender: FDA-Public Use
  Company Number: US-JNJFOC-20050100305

PATIENT
  Sex: Female

DRUGS (7)
  1. MOTRIN [Suspect]
  2. MOTRIN [Suspect]
  3. HALDOL [Concomitant]
  4. FLOVENT [Concomitant]
  5. NORVASC [Concomitant]
  6. LIPITOR [Concomitant]
  7. TRIHEXYPHENIDYL HCL [Concomitant]

REACTIONS (3)
  - BLINDNESS UNILATERAL [None]
  - GLAUCOMA [None]
  - TREATMENT NONCOMPLIANCE [None]
